FAERS Safety Report 4969472-8 (Version None)
Quarter: 2006Q1

REPORT INFORMATION
  Report Type: 
  Country: None (occurrence: None)
  Receive Date: 20060330
  Receipt Date: 20060314
  Transmission Date: 20060701
  Serious: Yes (Hospitalization, Disabling)
  Sender: FDA-Public Use
  Company Number: 2006-138590-NL

PATIENT
  Age: 81 Year
  Sex: Male
  Weight: 78.5 kg

DRUGS (10)
  1. TICE BCG [Suspect]
     Indication: CARCINOMA IN SITU OF BLADDER
     Dosage: CFU INTRAVESICAL, 6 INSTILLATIONS
     Route: 043
     Dates: start: 20050920, end: 20051102
  2. LOTENSIN [Concomitant]
  3. ZOCOR [Concomitant]
  4. TRICOR [Concomitant]
  5. PLAVIX [Concomitant]
  6. METOPROLOL TARTRATE [Concomitant]
  7. LEXAPRO [Concomitant]
  8. NITROGLYCERIN [Concomitant]
  9. ALLOPURINOL [Concomitant]
  10. VITAMIN E [Concomitant]

REACTIONS (2)
  - BOVINE TUBERCULOSIS [None]
  - INTERSTITIAL LUNG DISEASE [None]
